FAERS Safety Report 4909725-2 (Version None)
Quarter: 2006Q1

REPORT INFORMATION
  Report Type: 
  Country: None (occurrence: None)
  Receive Date: 20060209
  Receipt Date: 20060127
  Transmission Date: 20060701
  Serious: Yes (Other)
  Sender: FDA-Public Use
  Company Number: 2006014355

PATIENT
  Age: 70 Year
  Sex: Male
  Weight: 79.3795 kg

DRUGS (1)
  1. LIPITOR [Suspect]
     Indication: STENT PLACEMENT
     Dosage: 10 MG (10 MG, 1 IN 1 D), ORAL
     Route: 048
     Dates: start: 20000101

REACTIONS (6)
  - DYSPHAGIA [None]
  - LIP NEOPLASM MALIGNANT STAGE UNSPECIFIED [None]
  - METASTASES TO LARYNX [None]
  - OESOPHAGEAL DISORDER [None]
  - SURGICAL PROCEDURE REPEATED [None]
  - THROAT CANCER [None]
